FAERS Safety Report 4450469-1 (Version None)
Quarter: 2004Q3

REPORT INFORMATION
  Report Type: 
  Country: None (occurrence: None)
  Receive Date: 20040914
  Receipt Date: 20040909
  Transmission Date: 20050211
  Serious: Yes (Life-Threatening)
  Sender: FDA-Public Use
  Company Number: 805#1#2004-00023

PATIENT
  Age: 60 Year
  Sex: Female

DRUGS (4)
  1. ALPROSTADIL [Suspect]
     Indication: CONTUSION
     Dosage: 80 MCG (40MCG 2 IN 1 DAY(S)) INTRAVENOUS DRIP
     Route: 041
     Dates: start: 20040824, end: 20040830
  2. MECOBALAMIN (MECOBALAMIN) [Concomitant]
  3. LOXOPROFEN SODIUM (LOXOPROFEN SODIUM) [Concomitant]
  4. INDOMETHACIN [Concomitant]

REACTIONS (11)
  - ALANINE AMINOTRANSFERASE INCREASED [None]
  - ASPARTATE AMINOTRANSFERASE INCREASED [None]
  - BLOOD ALKALINE PHOSPHATASE ABNORMAL [None]
  - C-REACTIVE PROTEIN INCREASED [None]
  - CHILLS [None]
  - DISSEMINATED INTRAVASCULAR COAGULATION [None]
  - HEPATIC FUNCTION ABNORMAL [None]
  - PLATELET COUNT DECREASED [None]
  - PYREXIA [None]
  - WHITE BLOOD CELL COUNT DECREASED [None]
  - WHITE BLOOD CELL COUNT INCREASED [None]
